FAERS Safety Report 4706836-1 (Version None)
Quarter: 2005Q3

REPORT INFORMATION
  Report Type: 
  Country: None (occurrence: None)
  Receive Date: 20050705
  Receipt Date: 20041111
  Transmission Date: 20060218
  Serious: Yes (Death, Life-Threatening, Hospitalization, Disabling)
  Sender: FDA-Public Use
  Company Number: HQ2006723APR2002

PATIENT
  Age: 63 Year
  Sex: Male
  Weight: 107 kg

DRUGS (10)
  1. MYLOTARG [Suspect]
     Indication: ACUTE MYELOID LEUKAEMIA
     Dosage: 9 MG/M(2) ONE TIME PER ONE DOSE, INTRAVENOUS
     Route: 042
     Dates: start: 19960306, end: 19960306
  2. ALLOPURINOL [Concomitant]
  3. LEVOFLOXACIN [Concomitant]
  4. FLUCONAZOLE [Concomitant]
  5. ACYCLOVIR [Concomitant]
  6. IMIPENEM [Concomitant]
  7. FLAGYL [Concomitant]
  8. K-DUR 10 [Concomitant]
  9. LACTAID (TILACTASE) [Concomitant]
  10. ATARAX [Concomitant]

REACTIONS (25)
  - ANOREXIA [None]
  - BLOOD BILIRUBIN INCREASED [None]
  - CHILLS [None]
  - DELIRIUM [None]
  - DEPRESSION [None]
  - DIARRHOEA [None]
  - DISEASE PROGRESSION [None]
  - DISEASE RECURRENCE [None]
  - FEBRILE NEUTROPENIA [None]
  - GENERAL PHYSICAL HEALTH DETERIORATION [None]
  - GRAFT VERSUS HOST DISEASE [None]
  - HAEMATOCRIT DECREASED [None]
  - HAEMOGLOBIN DECREASED [None]
  - HERPES VIRUS INFECTION [None]
  - HYPERGLYCAEMIA [None]
  - HYPOTENSION [None]
  - LIVER FUNCTION TEST ABNORMAL [None]
  - LUNG CONSOLIDATION [None]
  - MENTAL STATUS CHANGES [None]
  - NAUSEA [None]
  - PLATELET COUNT DECREASED [None]
  - STAPHYLOCOCCAL BACTERAEMIA [None]
  - TACHYPNOEA [None]
  - VOMITING [None]
  - WHITE BLOOD CELL COUNT DECREASED [None]
